FAERS Safety Report 12071158 (Version 1)
Quarter: 2016Q1

REPORT INFORMATION
  Report Type: Spontaneous
  Country: US (occurrence: US)
  Receive Date: 20160211
  Receipt Date: 20160211
  Transmission Date: 20160526
  Serious: Yes (Hospitalization)
  Sender: FDA-Public Use
  Company Number: US-THE RITEDOSE CORPORATION-2015RIT000016

PATIENT
  Age: 73 Year
  Sex: Female

DRUGS (5)
  1. ALBUTEROL SULFATE INHALATION SOLUTION [Suspect]
     Active Substance: ALBUTEROL SULFATE
     Indication: ASTHMA
     Route: 055
     Dates: start: 20130603
  2. SYMBICORT [Suspect]
     Active Substance: BUDESONIDE\FORMOTEROL FUMARATE DIHYDRATE
  3. DIOVAN [Concomitant]
     Active Substance: VALSARTAN
  4. PROVENTIL [Suspect]
     Active Substance: ALBUTEROL
     Dosage: UNK, BID
  5. ALBUTEROL SULFATE INHALATION SOLUTION [Suspect]
     Active Substance: ALBUTEROL SULFATE
     Indication: CHRONIC OBSTRUCTIVE PULMONARY DISEASE

REACTIONS (12)
  - Vision blurred [Unknown]
  - Expired product administered [Unknown]
  - Bronchitis [Unknown]
  - Throat irritation [Unknown]
  - Nausea [Unknown]
  - Feeding disorder [Unknown]
  - Asthma [Unknown]
  - Blood pressure increased [Unknown]
  - Heart rate increased [Unknown]
  - Dyspnoea [Unknown]
  - Throat tightness [Unknown]
  - Tremor [Unknown]

NARRATIVE: CASE EVENT DATE: 201504
